FAERS Safety Report 10241727 (Version 1)
Quarter: 2014Q2

REPORT INFORMATION
  Report Type: Spontaneous
  Country: US (occurrence: None)
  Receive Date: 20140617
  Receipt Date: 20140617
  Transmission Date: 20141212
  Serious: Yes (Death)
  Sender: FDA-Public Use
  Company Number: None

PATIENT
  Age: 43 Year
  Sex: Female
  Weight: 57.4 kg

DRUGS (1)
  1. THYMOGLOBULIN [Suspect]
     Indication: RENAL TRANSPLANT
     Dosage: 75MG X 1, ?50MG X 1
     Route: 042

REACTIONS (2)
  - Adverse drug reaction [None]
  - Product quality issue [None]
